FAERS Safety Report 15847608 (Version 3)
Quarter: 2019Q2

REPORT INFORMATION
  Report Type: Spontaneous
  Country: BE (occurrence: BE)
  Receive Date: 20190121
  Receipt Date: 20190415
  Transmission Date: 20190711
  Serious: Yes (Other)
  Sender: FDA-Public Use
  Company Number: BE-TEVA-2019-BE-100036

PATIENT
  Age: 53 Year

DRUGS (2)
  1. CYPROTERONE ACETATE 50 MG [Suspect]
     Active Substance: CYPROTERONE ACETATE
     Indication: TRANSGENDER HORMONAL THERAPY
     Dosage: 50 MILLIGRAM EVERY 1 DAY
     Route: 065
  2. ESTRADIOL. [Suspect]
     Active Substance: ESTRADIOL
     Indication: TRANSGENDER HORMONAL THERAPY
     Dosage: 50 MICROGRAM/24H TWICE WEEKLY;
     Route: 062

REACTIONS (1)
  - Meningioma [Recovering/Resolving]
